FAERS Safety Report 20081475 (Version 1)
Quarter: 2021Q4

REPORT INFORMATION
  Report Type: Spontaneous
  Country: GB (occurrence: GB)
  Receive Date: 20211117
  Receipt Date: 20211117
  Transmission Date: 20220303
  Serious: Yes (Other)
  Sender: FDA-Public Use
  Company Number: None

PATIENT
  Age: 92 Year
  Sex: Male
  Weight: 83 kg

DRUGS (21)
  1. TRIMETHOPRIM [Suspect]
     Active Substance: TRIMETHOPRIM
     Dosage: 200MG
     Route: 065
     Dates: start: 20211104
  2. AMIODARONE [Concomitant]
     Active Substance: AMIODARONE
     Dosage: 1 DOSAGE FORMS DAILY;
     Dates: start: 20210401
  3. AMOXICILLIN [Concomitant]
     Active Substance: AMOXICILLIN
     Dosage: 3 DOSAGE FORMS DAILY;
     Dates: start: 20211019, end: 20211026
  4. CALCEOS [Concomitant]
     Active Substance: CALCIUM CARBONATE\CHOLECALCIFEROL
     Dosage: 2 DOSAGE FORMS DAILY;
     Dates: start: 20210721
  5. BECLOMETHASONE DIPROPIONATE [Concomitant]
     Active Substance: BECLOMETHASONE DIPROPIONATE
     Dosage: 4 DOSAGE FORMS DAILY; (TO REPLACE FOSTAI...
     Route: 055
     Dates: start: 20210707
  6. CLOPIDOGREL [Concomitant]
     Active Substance: CLOPIDOGREL BISULFATE
     Dosage: 1 DOSAGE FORMS DAILY;
     Dates: start: 20210721
  7. CONOTRANE [Concomitant]
     Dosage: TO AFFECTED AREA(S) OF INTACT S...
     Dates: start: 20210707
  8. DRAPOLENE [Concomitant]
     Dates: start: 20211029
  9. IBUPROFEN [Concomitant]
     Active Substance: IBUPROFEN
     Dosage: 4 DOSAGE FORMS DAILY; TO AFFECTED AREA
     Dates: start: 20210903, end: 20210904
  10. FINASTERIDE [Concomitant]
     Active Substance: FINASTERIDE
     Dosage: 1 DOSAGE FORMS DAILY;
     Dates: start: 20210324
  11. POLYETHYLENE GLYCOL 3350\POTASSIUM CHLORIDE\SODIUM BICARBONATE\SODIUM [Concomitant]
     Active Substance: POLYETHYLENE GLYCOL 3350\POTASSIUM CHLORIDE\SODIUM BICARBONATE\SODIUM CHLORIDE
     Indication: Constipation
     Dosage: 1 DOSAGE FORMS DAILY;
     Dates: start: 20210526
  12. LEVOTHYROXINE [Concomitant]
     Active Substance: LEVOTHYROXINE
     Dosage: 1 DOSAGE FORMS DAILY; EACH MORNING AT LEAST 30 MINUTE...
     Dates: start: 20210517
  13. MIRABEGRON [Concomitant]
     Active Substance: MIRABEGRON
     Dosage: 1 DOSAGE FORMS DAILY;
     Dates: start: 20210903, end: 20211003
  14. MIRTAZAPINE [Concomitant]
     Active Substance: MIRTAZAPINE
     Dosage: 1 DOSAGE FORMS DAILY; AT BEDTIME
     Dates: start: 20210701, end: 20211103
  15. OMEPRAZOLE [Concomitant]
     Active Substance: OMEPRAZOLE
     Dosage: 1 DOSAGE FORMS DAILY; IN REPLACE OF RANITIDINE
     Dates: start: 20210517
  16. ACETAMINOPHEN [Concomitant]
     Active Substance: ACETAMINOPHEN
     Dosage: TAKE ONE OR TWO TABLETS 4 TIMES DAILY (MAXIMUM ...
     Dates: start: 20210210
  17. PREDNISOLONE [Concomitant]
     Active Substance: PREDNISOLONE
     Dosage: 8 DOSAGE FORMS DAILY;
     Dates: start: 20211019, end: 20211024
  18. ALBUTEROL [Concomitant]
     Active Substance: ALBUTEROL
     Dosage: ONE OR TWO PUFFS FOUR TIMES A DAY...
     Route: 055
     Dates: start: 20210219
  19. SENNA [Concomitant]
     Active Substance: SENNA LEAF\SENNOSIDES\SENNOSIDES A AND B
     Dosage: ONE OR TWO TO BE TAKEN AT NIGHT WHEN REQUIRED F...
     Dates: start: 20210416
  20. TAMSULOSIN HYDROCHLORIDE [Concomitant]
     Active Substance: TAMSULOSIN HYDROCHLORIDE
     Dosage: 1 DOSAGE FORMS DAILY;
     Dates: start: 20211029
  21. TRAZODONE [Concomitant]
     Active Substance: TRAZODONE HYDROCHLORIDE
     Dosage: 2 DOSAGE FORMS DAILY; AT LUNCHTIME AND IN THE EVENING.
     Dates: start: 20211103

REACTIONS (1)
  - Urticaria [Recovered/Resolved]

NARRATIVE: CASE EVENT DATE: 20211104
